FAERS Safety Report 16944978 (Version 6)
Quarter: 2020Q3

REPORT INFORMATION
  Report Type: Spontaneous
  Country: FR (occurrence: FR)
  Receive Date: 20191022
  Receipt Date: 20200914
  Transmission Date: 20201102
  Serious: Yes (Other)
  Sender: FDA-Public Use
  Company Number: FR-AKCEA THERAPEUTICS-2019IS001612

PATIENT
  Age: 75 Year
  Sex: Male

DRUGS (3)
  1. TEGSEDI [Suspect]
     Active Substance: INOTERSEN SODIUM
     Dates: start: 20190712
  2. ISSD (INTEGRATED SYRINGE SAFETY DEVICE) [Suspect]
     Active Substance: DEVICE
  3. TEGSEDI [Suspect]
     Active Substance: INOTERSEN SODIUM
     Route: 065
     Dates: start: 20190705

REACTIONS (19)
  - Renal impairment [Unknown]
  - Dermabrasion [Unknown]
  - Injection site irritation [Unknown]
  - Axillary mass [Recovering/Resolving]
  - Motor dysfunction [Recovering/Resolving]
  - Movement disorder [Recovering/Resolving]
  - Arthropathy [Recovering/Resolving]
  - Hordeolum [Unknown]
  - Musculoskeletal chest pain [Unknown]
  - Rib fracture [Unknown]
  - Haematoma [Unknown]
  - Glomerular filtration rate decreased [Unknown]
  - Neck mass [Recovering/Resolving]
  - Oedema peripheral [Not Recovered/Not Resolved]
  - Paraesthesia [Unknown]
  - Nasopharyngitis [Not Recovered/Not Resolved]
  - Fall [Unknown]
  - Anxiety [Unknown]
  - Platelet count decreased [Unknown]

NARRATIVE: CASE EVENT DATE: 20190712
